FAERS Safety Report 7445614-X (Version None)
Quarter: 2011Q2

REPORT INFORMATION
  Report Type: 
  Country: None (occurrence: None)
  Receive Date: 20110429
  Receipt Date: 20110418
  Transmission Date: 20111010
  Serious: Yes (Death)
  Sender: FDA-Public Use
  Company Number: IT-TEVA-277537ISR

PATIENT
  Sex: Female

DRUGS (1)
  1. AZITHROMYCIN [Suspect]

REACTIONS (4)
  - RESPIRATORY FAILURE [None]
  - EPIDERMOLYSIS [None]
  - TOXIC EPIDERMAL NECROLYSIS [None]
  - SEPSIS [None]
